FAERS Safety Report 8587192-8 (Version None)
Quarter: 2012Q3

REPORT INFORMATION
  Report Type: 
  Country: None (occurrence: None)
  Receive Date: 20120810
  Receipt Date: 20110715
  Transmission Date: 20120928
  Serious: No
  Sender: FDA-Public Use
  Company Number: US-ASTRAZENECA-2010SE56808

PATIENT
  Age: 79 Year
  Sex: Female

DRUGS (2)
  1. ARIMIDEX [Suspect]
     Route: 048
     Dates: start: 20061201
  2. VICODIN [Concomitant]

REACTIONS (9)
  - MUSCULOSKELETAL PAIN [None]
  - MUSCULOSKELETAL DISCOMFORT [None]
  - RHINORRHOEA [None]
  - LIMB DISCOMFORT [None]
  - PAIN IN EXTREMITY [None]
  - HAIR GROWTH ABNORMAL [None]
  - MUSCLE SPASMS [None]
  - MALAISE [None]
  - SINUSITIS [None]
